FAERS Safety Report 6305429-2 (Version None)
Quarter: 2009Q3

REPORT INFORMATION
  Report Type: 
  Country: None (occurrence: None)
  Receive Date: 20090811
  Receipt Date: 20090804
  Transmission Date: 20100115
  Serious: Yes (Other)
  Sender: FDA-Public Use
  Company Number: US-JNJCH-2009021209

PATIENT
  Age: 46 Year
  Sex: Male
  Weight: 93 kg

DRUGS (2)
  1. PURELL ORIGINAL [Suspect]
     Indication: PROPHYLAXIS
     Dosage: TEXT:^ENOUGH TO COVER HANDS/ FOREARMS^ 1 TIME
     Route: 061
     Dates: start: 20090801, end: 20090801
  2. ATENOLOL [Concomitant]
     Indication: HYPERTENSION
     Dosage: TEXT:25 MG 1 X A DAY
     Route: 065
     Dates: start: 20090201

REACTIONS (2)
  - CAUSTIC INJURY [None]
  - URTICARIA [None]
